FAERS Safety Report 11102831 (Version 3)
Quarter: 2015Q2

REPORT INFORMATION
  Report Type: Report from Study
  Country: KR (occurrence: KR)
  Receive Date: 20150511
  Receipt Date: 20150605
  Transmission Date: 20150821
  Serious: Yes (Death)
  Sender: FDA-Public Use
  Company Number: KR-BAYER-2015-184400

PATIENT
  Age: 66 Year
  Sex: Female
  Weight: 61.8 kg

DRUGS (7)
  1. SOLETON [Concomitant]
     Active Substance: ZALTOPROFEN
     Indication: INFECTION PROPHYLAXIS
     Dosage: 1 TABLET, TID
     Route: 048
     Dates: start: 20111020, end: 20111116
  2. REVANEX [Concomitant]
     Indication: INFECTION PROPHYLAXIS
     Dosage: 1 TABLET, TID
     Route: 048
     Dates: start: 20111113, end: 20111116
  3. PANCRELIPASE. [Concomitant]
     Active Substance: PANCRELIPASE
     Indication: INFECTION PROPHYLAXIS
     Dosage: 1 TABLET, TID
     Route: 048
     Dates: start: 20111113, end: 20111116
  4. SORAFENIB [Suspect]
     Active Substance: SORAFENIB
     Indication: RENAL CELL CARCINOMA
     Dosage: DAILY DOSE 800 MG
     Route: 048
     Dates: start: 20111107, end: 20111115
  5. DULCOLAX [Concomitant]
     Active Substance: BISACODYL OR DOCUSATE SODIUM
     Indication: CONSTIPATION PROPHYLAXIS
     Dosage: 1 TABLET, HS
     Route: 048
     Dates: start: 20111113, end: 20111116
  6. YAMATETAN [Concomitant]
     Indication: INFECTION PROPHYLAXIS
     Dosage: 1 G, BID
     Route: 042
     Dates: start: 20111111, end: 20111116
  7. TRESTAN [Concomitant]
     Indication: INFECTION PROPHYLAXIS
     Dosage: 1 TABLET, TID
     Dates: start: 20111028, end: 20111116

REACTIONS (1)
  - Cardiac arrest [Fatal]

NARRATIVE: CASE EVENT DATE: 20111116
